FAERS Safety Report 12255018 (Version 1)
Quarter: 2016Q2

REPORT INFORMATION
  Report Type: Not Available
  Country: IN (occurrence: IN)
  Receive Date: 20160411
  Receipt Date: 20160411
  Transmission Date: 20160815
  Serious: Yes (Other)
  Sender: FDA-Public Use
  Company Number: IN-ANIPHARMA-2016-IN-000009

PATIENT
  Age: 20 Year
  Sex: Male

DRUGS (1)
  1. RISPERIDONE (NON-SPECIFIC) [Suspect]
     Active Substance: RISPERIDONE
     Dosage: 6 MG DAILY IN DIVIDED DOSES
     Route: 048

REACTIONS (2)
  - Excoriation [Recovered/Resolved]
  - Skin ulcer [Recovered/Resolved]
